FAERS Safety Report 4480642-8 (Version None)
Quarter: 2004Q4

REPORT INFORMATION
  Report Type: 
  Country: None (occurrence: None)
  Receive Date: 20041019
  Receipt Date: 20041004
  Transmission Date: 20050328
  Serious: Yes (Hospitalization, Other)
  Sender: FDA-Public Use
  Company Number: WAES 0410BRA00148

PATIENT
  Age: 77 Year
  Sex: Female

DRUGS (2)
  1. VIOXX [Suspect]
     Indication: BONE PAIN
     Dosage: 50 MG/DAILY
     Dates: start: 20030101, end: 20040930
  2. ENALAPRIL MALEATE [Concomitant]

REACTIONS (3)
  - ANGINA PECTORIS [None]
  - CONDITION AGGRAVATED [None]
  - HYPERTENSION [None]
